FAERS Safety Report 5941892-4 (Version None)
Quarter: 2008Q4

REPORT INFORMATION
  Report Type: 
  Country: None (occurrence: None)
  Receive Date: 20081104
  Receipt Date: 20081104
  Transmission Date: 20090506
  Serious: Yes (Life-Threatening, Other)
  Sender: FDA-Public Use
  Company Number: None

PATIENT
  Age: 41 Year
  Weight: 112.4921 kg

DRUGS (1)
  1. PROAIR HFA [Suspect]

REACTIONS (6)
  - APPARENT LIFE THREATENING EVENT [None]
  - COLD SWEAT [None]
  - DRUG EFFECT DECREASED [None]
  - HEART RATE INCREASED [None]
  - LUNG DISORDER [None]
  - PRODUCT QUALITY ISSUE [None]
